FAERS Safety Report 19757400 (Version 1)
Quarter: 2021Q3

REPORT INFORMATION
  Report Type: Spontaneous
  Country: GB (occurrence: GB)
  Receive Date: 20210828
  Receipt Date: 20210828
  Transmission Date: 20211014
  Serious: Yes (Hospitalization, Other)
  Sender: FDA-Public Use
  Company Number: UK-MICRO LABS LIMITED-ML2021-02007

PATIENT
  Age: 53 Year
  Sex: Male
  Weight: 125.1 kg

DRUGS (24)
  1. DOCUSATE SODIUM. [Concomitant]
     Active Substance: DOCUSATE SODIUM
     Route: 048
     Dates: start: 2008, end: 2021
  2. GABAPENTIN. [Concomitant]
     Active Substance: GABAPENTIN
     Route: 048
     Dates: start: 20201125, end: 20201127
  3. BISOPROLOL. [Suspect]
     Active Substance: BISOPROLOL FUMARATE
     Route: 048
     Dates: start: 2017, end: 20210308
  4. FUROSEMIDE. [Suspect]
     Active Substance: FUROSEMIDE
     Route: 048
     Dates: start: 20201125, end: 20210308
  5. GEMCITABINE. [Suspect]
     Active Substance: GEMCITABINE
     Route: 042
     Dates: start: 20200304, end: 20210304
  6. ASPIRIN. [Concomitant]
     Active Substance: ASPIRIN
     Route: 048
     Dates: start: 2017, end: 20210308
  7. LANOLIN. [Concomitant]
     Active Substance: LANOLIN
     Route: 061
     Dates: start: 20201123, end: 2021
  8. OXYCONTIN [Suspect]
     Active Substance: OXYCODONE HYDROCHLORIDE
     Route: 048
     Dates: start: 20201105
  9. METOCLOPRAMIDE. [Suspect]
     Active Substance: METOCLOPRAMIDE
     Route: 048
     Dates: start: 20201206, end: 2021
  10. PEMBROLIZUMAB. [Suspect]
     Active Substance: PEMBROLIZUMAB
     Route: 042
     Dates: start: 20201210
  11. LANSOPRAZOLE. [Concomitant]
     Active Substance: LANSOPRAZOLE
     Route: 048
     Dates: start: 2017, end: 20210308
  12. SENOKOT [Concomitant]
     Active Substance: SENNOSIDES
     Route: 048
     Dates: start: 20200224, end: 20210308
  13. LOSARTAN (ANDA 091541) [Suspect]
     Active Substance: LOSARTAN POTASSIUM
     Indication: HYPERTENSION
     Route: 048
     Dates: start: 20201206, end: 20210308
  14. OXYCONTIN [Suspect]
     Active Substance: OXYCODONE HYDROCHLORIDE
     Dates: start: 20210224
  15. ACETAMINOPHEN. [Concomitant]
     Active Substance: ACETAMINOPHEN
     Route: 048
     Dates: start: 2008
  16. ATORVASTATIN CALCIUM. [Concomitant]
     Active Substance: ATORVASTATIN CALCIUM
     Route: 048
     Dates: start: 2017, end: 20210308
  17. GEMCITABINE. [Suspect]
     Active Substance: GEMCITABINE
     Route: 042
     Dates: start: 20201117, end: 20201210
  18. OXYCODONE. [Suspect]
     Active Substance: OXYCODONE HYDROCHLORIDE
     Route: 046
     Dates: start: 20201105
  19. PEMBROLIZUMAB. [Suspect]
     Active Substance: PEMBROLIZUMAB
     Route: 042
     Dates: start: 20210304
  20. PETROLATUM. [Concomitant]
     Active Substance: PETROLATUM
     Route: 061
     Dates: start: 20201123, end: 2021
  21. MINERAL OIL. [Concomitant]
     Active Substance: MINERAL OIL
     Route: 061
     Dates: start: 20201123, end: 2021
  22. CLOTRIMAZOLE. [Concomitant]
     Active Substance: CLOTRIMAZOLE
     Route: 061
     Dates: start: 20201123, end: 20201127
  23. LAXIDO 28 JUL 2021 [Concomitant]
     Route: 048
     Dates: start: 2008
  24. LIDOCAINE. [Concomitant]
     Active Substance: LIDOCAINE
     Route: 061
     Dates: start: 20201109, end: 2021

REACTIONS (9)
  - Cellulitis [Recovered/Resolved]
  - Fall [Recovered/Resolved]
  - Cardiac failure [Recovered/Resolved]
  - Blood bilirubin increased [Not Recovered/Not Resolved]
  - Skin infection [Recovered/Resolved]
  - Dyspnoea [Not Recovered/Not Resolved]
  - Dizziness [Unknown]
  - Urinary retention [Unknown]
  - Accident [Unknown]

NARRATIVE: CASE EVENT DATE: 20201221
